FAERS Safety Report 8307757-8 (Version None)
Quarter: 2012Q2

REPORT INFORMATION
  Report Type: 
  Country: None (occurrence: None)
  Receive Date: 20120424
  Receipt Date: 20120420
  Transmission Date: 20120825
  Serious: Yes (Life-Threatening, Hospitalization, Other)
  Sender: FDA-Public Use
  Company Number: PE-B.I. PHARMACEUTICALS,INC./RIDGEFIELD-2011-RA-00369RA

PATIENT
  Sex: Female

DRUGS (4)
  1. PRAMIPEXOLE DIHYDROCHLORIDE [Suspect]
     Indication: PARKINSON'S DISEASE
     Dosage: 1 (8 AM), 1 (2 PM), 1/2 (8 PM)
     Dates: start: 20080101, end: 20111101
  2. ZATRIX [Concomitant]
     Dosage: 0.5 MG
  3. PRAMIPEXOLE DIHYDROCHLORIDE [Suspect]
     Dosage: 0.625 MG
     Route: 048
     Dates: start: 20111101, end: 20120201
  4. SINEMET [Concomitant]
     Dosage: 1/2  TABLET (8 AM, 12 PM, 4 PM, 8 PM)

REACTIONS (9)
  - GASTRITIS [None]
  - HYPERTENSION [None]
  - NEPHROTIC SYNDROME [None]
  - DYSPEPSIA [None]
  - VOMITING [None]
  - DIZZINESS [None]
  - RENAL IMPAIRMENT [None]
  - PROTEINURIA [None]
  - OROPHARYNGEAL BLISTERING [None]
